FAERS Safety Report 4832476-X (Version None)
Quarter: 2005Q4

REPORT INFORMATION
  Report Type: 
  Country: None (occurrence: None)
  Receive Date: 20051114
  Receipt Date: 20050930
  Transmission Date: 20060501
  Serious: Yes (Death)
  Sender: FDA-Public Use
  Company Number: 2005AL004189

PATIENT
  Age: 29 Year
  Sex: 0

DRUGS (3)
  1. PHENTERMINE [Suspect]
  2. COCAINE [Suspect]
  3. HYDROCODONE [Suspect]

REACTIONS (2)
  - CARDIAC ARREST [None]
  - RESPIRATORY ARREST [None]
